FAERS Safety Report 6379597-0 (Version None)
Quarter: 2009Q3

REPORT INFORMATION
  Report Type: 
  Country: None (occurrence: None)
  Receive Date: 20090923
  Receipt Date: 20090910
  Transmission Date: 20100115
  Serious: No
  Sender: FDA-Public Use
  Company Number: 1-18766282

PATIENT
  Age: 66 Year
  Sex: Female
  Weight: 86.1834 kg

DRUGS (13)
  1. WARFARIN SODIUM [Suspect]
     Indication: KNEE OPERATION
     Dosage: 2.5MG DAILY, ORAL
     Route: 048
     Dates: start: 20090530, end: 20090608
  2. LORAZEPAM [Concomitant]
  3. DILTIAZEM [Concomitant]
  4. BACLOFEN [Concomitant]
  5. GABAPENTIN [Concomitant]
  6. FLECAINIDE ACETATE [Concomitant]
  7. MELOXICAM [Concomitant]
  8. TRIAMTERENE AND HYDROCHLOROTHIAZIDE [Concomitant]
  9. SINGULAIR [Concomitant]
  10. SANCTURA [Concomitant]
  11. PRAVASTATIN [Concomitant]
  12. TRAZODONE [Concomitant]
  13. DULCOLAX [Concomitant]

REACTIONS (2)
  - CHEST PAIN [None]
  - THROMBOSIS [None]
